FAERS Safety Report 22050635 (Version 2)
Quarter: 2023Q1

REPORT INFORMATION
  Report Type: Report from Study
  Country: US (occurrence: US)
  Receive Date: 20230301
  Receipt Date: 20230306
  Transmission Date: 20230418
  Serious: Yes (Hospitalization)
  Sender: FDA-Public Use
  Company Number: US-BAYER-2023A023827

PATIENT
  Age: 68 Year
  Sex: Male

DRUGS (2)
  1. NUBEQA [Suspect]
     Active Substance: DAROLUTAMIDE
     Indication: Prostate cancer
     Dosage: 600 MG, BID
     Route: 048
     Dates: start: 20230131, end: 20230210
  2. LYNPARZA [Concomitant]
     Active Substance: OLAPARIB
     Dosage: 150 MG, BID
     Route: 048
     Dates: end: 20230210

REACTIONS (1)
  - Illness [Unknown]
